FAERS Safety Report 11274148 (Version 3)
Quarter: 2015Q3

REPORT INFORMATION
  Report Type: Spontaneous
  Country: US (occurrence: US)
  Receive Date: 20150715
  Receipt Date: 20150810
  Transmission Date: 20151125
  Serious: Yes (Other)
  Sender: FDA-Public Use
  Company Number: US-PFIZER INC-2015231854

PATIENT
  Age: 36 Year
  Sex: Female

DRUGS (7)
  1. PROPRANOLOL [Concomitant]
     Active Substance: PROPRANOLOL\PROPRANOLOL HYDROCHLORIDE
     Indication: BIPOLAR DISORDER
     Dosage: 20 MG, 3X/DAY
  2. ABILIFY [Concomitant]
     Active Substance: ARIPIPRAZOLE
     Indication: BIPOLAR DISORDER
     Dosage: 5 MG, ? TAB, 1X DAY
  3. RISPERDAL [Concomitant]
     Active Substance: RISPERIDONE
     Indication: BIPOLAR DISORDER
     Dosage: 125 MG, 1X/DAY
  4. GABAPENTIN. [Suspect]
     Active Substance: GABAPENTIN
     Indication: BIPOLAR DISORDER
     Dosage: 800 MG, 1X/DAY
     Dates: start: 201505, end: 20150519
  5. DEPAKOTE [Concomitant]
     Active Substance: DIVALPROEX SODIUM
     Indication: BIPOLAR DISORDER
     Dosage: 250 MG, 3X/DAY
  6. CYTOMEL [Concomitant]
     Active Substance: LIOTHYRONINE SODIUM
     Indication: BIPOLAR DISORDER
     Dosage: 20 ?G, 1X/DAY (5MCG 4 1X DAY)
  7. LIPITOR [Concomitant]
     Active Substance: ATORVASTATIN CALCIUM
     Dosage: 40 MG, 1X/DAY

REACTIONS (9)
  - Activities of daily living impaired [Unknown]
  - Insomnia [Unknown]
  - Product use issue [Unknown]
  - Agitated depression [Unknown]
  - Suicidal ideation [Unknown]
  - Drug intolerance [Recovered/Resolved]
  - Headache [Unknown]
  - Disturbance in attention [Unknown]
  - Aggression [Unknown]

NARRATIVE: CASE EVENT DATE: 2015
